FAERS Safety Report 16361007 (Version 1)
Quarter: 2019Q2

REPORT INFORMATION
  Report Type: Spontaneous
  Country: US (occurrence: US)
  Receive Date: 20190419
  Receipt Date: 20190419
  Transmission Date: 20190711
  Serious: No
  Sender: FDA-Public Use
  Company Number: None

PATIENT
  Age: 76 Year
  Sex: Female
  Weight: 43.09 kg

DRUGS (3)
  1. TYMLOS [Suspect]
     Active Substance: ABALOPARATIDE
     Indication: VITAMIN D DEFICIENCY
     Route: 058
     Dates: start: 201812
  2. TYMLOS [Suspect]
     Active Substance: ABALOPARATIDE
     Indication: SENILE OSTEOPOROSIS
  3. TYMLOS [Suspect]
     Active Substance: ABALOPARATIDE
     Indication: ARTHRALGIA

REACTIONS (1)
  - Atrial fibrillation [None]
